FAERS Safety Report 7512164-1 (Version None)
Quarter: 2011Q2

REPORT INFORMATION
  Report Type: 
  Country: None (occurrence: None)
  Receive Date: 20110531
  Receipt Date: 20110510
  Transmission Date: 20111010
  Serious: No
  Sender: FDA-Public Use
  Company Number: US-B.I. PHARMACEUTICALS,INC./RIDGEFIELD-2011-BP-10640BP

PATIENT
  Sex: Female

DRUGS (10)
  1. CALCIUM CARBONATE [Concomitant]
     Indication: PROPHYLAXIS
     Route: 048
  2. FLUOXETINE HCL (PROZAC) [Concomitant]
     Dosage: 10 MG
  3. PRADAXA [Suspect]
     Indication: ATRIAL FIBRILLATION
     Dosage: 300 MG
     Route: 048
     Dates: start: 20110301
  4. CITALOPRAM HYDROBROMIDE [Suspect]
     Indication: DEPRESSION
     Route: 048
     Dates: start: 20110301, end: 20110301
  5. METOPROLOL TARTRATE [Concomitant]
     Indication: HYPERTENSION
     Dosage: 25 MG
     Route: 048
  6. ALLEGRA [Concomitant]
     Dosage: 10 MG
  7. FISH OIL [Concomitant]
     Indication: PROPHYLAXIS
     Route: 048
  8. DULERA TABLET [Suspect]
     Indication: ASTHMA
     Route: 055
  9. LISINOPRIL [Concomitant]
     Indication: HYPERTENSION
     Dosage: 10 MG
     Route: 048
  10. VITAMIN D [Concomitant]
     Indication: PROPHYLAXIS
     Route: 048

REACTIONS (4)
  - FATIGUE [None]
  - DIPLOPIA [None]
  - DIZZINESS [None]
  - VISION BLURRED [None]
